FAERS Safety Report 7830766-X (Version None)
Quarter: 2011Q4

REPORT INFORMATION
  Report Type: 
  Country: None (occurrence: None)
  Receive Date: 20111021
  Receipt Date: 20111018
  Transmission Date: 20120403
  Serious: Yes (Hospitalization, Congenital Anomaly)
  Sender: FDA-Public Use
  Company Number: US-GLAXOSMITHKLINE-A0877369A

PATIENT
  Sex: Male
  Weight: 3.3 kg

DRUGS (5)
  1. ZOLOFT [Concomitant]
     Route: 064
     Dates: start: 20081223
  2. PAXIL [Suspect]
     Indication: DEPRESSION
     Dosage: 30MG PER DAY
     Route: 064
  3. PAXIL CR [Suspect]
     Indication: DEPRESSION
     Route: 064
  4. ATARAX [Concomitant]
     Dates: start: 20081209
  5. PAROXETINE HCL [Suspect]
     Indication: ANXIETY
     Dosage: 20MG PER DAY
     Route: 064
     Dates: start: 20081209

REACTIONS (12)
  - CAMPTODACTYLY CONGENITAL [None]
  - TALIPES [None]
  - CRYPTORCHISM [None]
  - CRANIOSYNOSTOSIS [None]
  - INGUINAL HERNIA [None]
  - BINOCULAR EYE MOVEMENT DISORDER [None]
  - CLEFT PALATE [None]
  - STRABISMUS [None]
  - DYSMORPHISM [None]
  - MICROGNATHIA [None]
  - DEVELOPMENTAL DELAY [None]
  - MATERNAL EXPOSURE DURING PREGNANCY [None]
